FAERS Safety Report 7540983-4 (Version None)
Quarter: 2011Q2

REPORT INFORMATION
  Report Type: 
  Country: None (occurrence: None)
  Receive Date: 20110610
  Receipt Date: 20110526
  Transmission Date: 20111010
  Serious: Yes (Hospitalization)
  Sender: FDA-Public Use
  Company Number: GB-BAUSCH-2011BL003609

PATIENT
  Age: 75 Year
  Sex: Female

DRUGS (11)
  1. METHOTREXATE [Suspect]
     Indication: RHEUMATOID ARTHRITIS
     Route: 048
  2. PENICILLAMINE [Suspect]
     Indication: RHEUMATOID ARTHRITIS
     Route: 048
  3. FUROSEMIDE [Concomitant]
  4. SIMVASTATIN [Concomitant]
  5. ACETAMINOPHEN [Concomitant]
  6. PREDNISOLONE [Suspect]
     Indication: RHEUMATOID ARTHRITIS
     Route: 048
  7. ADCAL-D3 [Concomitant]
  8. ASPIRIN [Concomitant]
  9. OMEPRAZOLE [Concomitant]
  10. ATENOLOL [Concomitant]
  11. FERROUS SULFATE TAB [Concomitant]

REACTIONS (1)
  - BONE MARROW FAILURE [None]
